FAERS Safety Report 21622036 (Version 2)
Quarter: 2023Q1

REPORT INFORMATION
  Report Type: Report from Study
  Country: CA (occurrence: CA)
  Receive Date: 20221121
  Receipt Date: 20230309
  Transmission Date: 20230417
  Serious: Yes (Other)
  Sender: FDA-Public Use
  Company Number: CA-002147023-PHHY2014CA167857

PATIENT
  Age: 44 Year
  Sex: Female

DRUGS (3)
  1. SANDOSTATIN LAR DEPOT [Suspect]
     Active Substance: OCTREOTIDE ACETATE
     Indication: Insulinoma
     Dosage: 20 MG, Q4W (EVERY 4 WEEKS)
     Route: 030
     Dates: start: 20141125
  2. SANDOSTATIN LAR DEPOT [Suspect]
     Active Substance: OCTREOTIDE ACETATE
  3. SANDOSTATIN LAR DEPOT [Suspect]
     Active Substance: OCTREOTIDE ACETATE

REACTIONS (19)
  - Bradycardia [Unknown]
  - Blood pressure diastolic decreased [Unknown]
  - Body temperature decreased [Unknown]
  - Body temperature increased [Unknown]
  - Blister [Unknown]
  - Blood chromogranin A increased [Unknown]
  - Exfoliative rash [Unknown]
  - Mood altered [Unknown]
  - Blood pressure systolic decreased [Unknown]
  - Dry skin [Unknown]
  - Erythema [Unknown]
  - Pyrexia [Unknown]
  - Rash [Unknown]
  - Rash pruritic [Recovering/Resolving]
  - Injection site pain [Unknown]
  - Injection site mass [Unknown]
  - Gait disturbance [Unknown]
  - Pain in extremity [Unknown]
  - Product use in unapproved indication [Unknown]

NARRATIVE: CASE EVENT DATE: 20140101
